FAERS Safety Report 5332947-6 (Version None)
Quarter: 2007Q2

REPORT INFORMATION
  Report Type: 
  Country: None (occurrence: None)
  Receive Date: 20070306
  Receipt Date: 20060713
  Transmission Date: 20071010
  Serious: Yes (Other)
  Sender: FDA-Public Use
  Company Number: A03200604872

PATIENT
  Age: 71 Year
  Sex: Male
  Weight: 80.7403 kg

DRUGS (1)
  1. PLAVIX [Suspect]
     Indication: CORONARY ARTERY DISEASE
     Dosage: 75 MG QD - ORAL
     Route: 048
     Dates: start: 20060614, end: 20060630

REACTIONS (5)
  - ARTHRALGIA [None]
  - GOUT [None]
  - MYALGIA [None]
  - PAIN [None]
  - SERUM SICKNESS [None]
